FAERS Safety Report 23423231 (Version 1)
Quarter: 2024Q1

REPORT INFORMATION
  Report Type: Report from Study
  Country: US (occurrence: US)
  Receive Date: 20240119
  Receipt Date: 20240119
  Transmission Date: 20240409
  Serious: Yes (Hospitalization, Other)
  Sender: FDA-Public Use
  Company Number: US-IGSA-BIG0027270

PATIENT
  Age: 42 Year
  Sex: Female
  Weight: 99.773 kg

DRUGS (3)
  1. GAMUNEX-C [Suspect]
     Active Substance: HUMAN IMMUNOGLOBULIN G
     Indication: Chronic inflammatory demyelinating polyradiculoneuropathy
     Dosage: 52.5 GRAM, Q.3WK.
     Route: 042
     Dates: start: 202306
  2. GAMUNEX-C [Suspect]
     Active Substance: HUMAN IMMUNOGLOBULIN G
     Indication: Intentional overdose
     Dosage: 52.5 GRAM, Q.3WK.
     Route: 042
     Dates: start: 202203, end: 202203
  3. PREDNISONE [Concomitant]
     Active Substance: PREDNISONE
     Indication: Premedication
     Dosage: UNK
     Dates: start: 202203

REACTIONS (3)
  - Pneumonia aspiration [Recovered/Resolved]
  - Pericarditis [Recovered/Resolved]
  - Blood pressure increased [Recovered/Resolved]

NARRATIVE: CASE EVENT DATE: 20220301
